FAERS Safety Report 5746692-6 (Version None)
Quarter: 2008Q2

REPORT INFORMATION
  Report Type: 
  Country: None (occurrence: None)
  Receive Date: 20080522
  Receipt Date: 20080519
  Transmission Date: 20081010
  Serious: Yes (Life-Threatening, Other)
  Sender: FDA-Public Use
  Company Number: FR-BRISTOL-MYERS SQUIBB COMPANY-14198915

PATIENT
  Age: 59 Year
  Sex: Female

DRUGS (6)
  1. GLUCOPHAGE [Suspect]
     Indication: TYPE 2 DIABETES MELLITUS
     Dosage: THERAPY START - SINCE SEVERAL YEARS.
     Route: 048
     Dates: end: 20080328
  2. ALLOPURINOL [Concomitant]
  3. TAHOR [Concomitant]
  4. HYTACAND [Concomitant]
  5. OXYBUTYNIN CHLORIDE [Concomitant]
  6. BLOPRESS [Concomitant]

REACTIONS (2)
  - GASTROENTERITIS [None]
  - LACTIC ACIDOSIS [None]
